FAERS Safety Report 17942791 (Version 1)
Quarter: 2020Q2

REPORT INFORMATION
  Report Type: Spontaneous
  Country: JP (occurrence: JP)
  Receive Date: 20200625
  Receipt Date: 20200625
  Transmission Date: 20200714
  Serious: Yes (Life-Threatening, Hospitalization, Other)
  Sender: FDA-Public Use
  Company Number: NVSJ2020JP006110

PATIENT
  Age: 64 Year
  Sex: Male
  Weight: 58.4 kg

DRUGS (5)
  1. FEBURIC [Concomitant]
     Active Substance: FEBUXOSTAT
     Indication: HYPERURICAEMIA
     Dosage: 20 MG, BID
     Route: 048
     Dates: end: 20200430
  2. METGLUCO [Suspect]
     Active Substance: METFORMIN HYDROCHLORIDE
     Indication: TYPE 2 DIABETES MELLITUS
     Dosage: 500 MG
     Route: 048
  3. TRAMADOL HYDROCHLORIDE AND ACETAMINOPHEN [Concomitant]
     Active Substance: ACETAMINOPHEN\TRAMADOL HYDROCHLORIDE
     Indication: NEUROPATHY PERIPHERAL
     Dosage: 1 DF, BID
     Route: 048
  4. EQUMET [Suspect]
     Active Substance: METFORMIN HYDROCHLORIDE\VILDAGLIPTIN
     Indication: TYPE 2 DIABETES MELLITUS
     Dosage: METFORMIN 250MG/ VILDAGLIPTIN 50MG, BID
     Route: 048
     Dates: end: 20200430
  5. PREGABALINE [Concomitant]
     Active Substance: PREGABALIN
     Indication: NEUROPATHY PERIPHERAL
     Dosage: 75 MG, BID
     Route: 048
     Dates: end: 20200430

REACTIONS (10)
  - Lactic acidosis [Recovered/Resolved]
  - Dysarthria [Unknown]
  - Blood pressure decreased [Unknown]
  - Hypoglycaemia [Unknown]
  - Liver disorder [Unknown]
  - Dehydration [Unknown]
  - Decreased appetite [Unknown]
  - Malnutrition [Unknown]
  - Altered state of consciousness [Unknown]
  - Renal impairment [Unknown]

NARRATIVE: CASE EVENT DATE: 20200501
